FAERS Safety Report 16211013 (Version 1)
Quarter: 2019Q2

REPORT INFORMATION
  Report Type: Spontaneous
  Country: FR (occurrence: FR)
  Receive Date: 20190418
  Receipt Date: 20190418
  Transmission Date: 20190711
  Serious: Yes (Hospitalization)
  Sender: FDA-Public Use
  Company Number: FR-ZYDUS-035819

PATIENT
  Age: 84 Year
  Sex: Female
  Weight: 53 kg

DRUGS (1)
  1. TRAMADOL. [Suspect]
     Active Substance: TRAMADOL
     Indication: SPINAL PAIN
     Route: 048
     Dates: start: 201801, end: 201801

REACTIONS (2)
  - Hallucination [Recovered/Resolved]
  - Delusional disorder, persecutory type [Recovered/Resolved]

NARRATIVE: CASE EVENT DATE: 201801
